FAERS Safety Report 18007999 (Version 2)
Quarter: 2020Q3

REPORT INFORMATION
  Report Type: Spontaneous
  Country: US (occurrence: US)
  Receive Date: 20200710
  Receipt Date: 20200714
  Transmission Date: 20201103
  Serious: No
  Sender: FDA-Public Use
  Company Number: US-PFIZER INC-2020264544

PATIENT
  Age: 66 Year
  Sex: Female
  Weight: 127 kg

DRUGS (2)
  1. IBRANCE [Suspect]
     Active Substance: PALBOCICLIB
     Indication: BREAST CANCER STAGE IV
     Dosage: 125 MG, CYCLIC (ONCE DAILY BY MOUTH, FOR 21 DAYS ON 7 DAYS OFF)
     Route: 048
     Dates: start: 201911
  2. FASLODEX [Concomitant]
     Active Substance: FULVESTRANT
     Indication: BLOOD OESTROGEN INCREASED
     Dosage: 1 DF, MONTHLY [ONE INJECTION INTO EACH BACK OF THE BUTT, ONCE MONTHLY]
     Route: 030
     Dates: start: 201910

REACTIONS (5)
  - Red blood cell count decreased [Unknown]
  - White blood cell count decreased [Unknown]
  - Fatigue [Not Recovered/Not Resolved]
  - Neutrophil count decreased [Unknown]
  - Dyspnoea [Unknown]

NARRATIVE: CASE EVENT DATE: 202005
